FAERS Safety Report 6977204-7 (Version None)
Quarter: 2010Q3

REPORT INFORMATION
  Report Type: 
  Country: None (occurrence: None)
  Receive Date: 20100910
  Receipt Date: 20100831
  Transmission Date: 20110219
  Serious: Yes (Other)
  Sender: FDA-Public Use
  Company Number: FR-PFIZER INC-2010103188

PATIENT
  Age: 76 Year
  Sex: Male
  Weight: 93 kg

DRUGS (10)
  1. ARGATROBAN [Suspect]
     Indication: HEPARIN-INDUCED THROMBOCYTOPENIA
     Dosage: 1.6 UG/KG/MIN (9.0 ML/HR)
     Route: 042
     Dates: start: 20100706, end: 20100729
  2. LOSARTAN [Concomitant]
     Indication: HYPERTENSION
     Dosage: 50 ONCE DAILY
     Route: 048
     Dates: start: 20050101
  3. INSULIN [Concomitant]
     Indication: DIABETES MELLITUS
     Dosage: UNK
     Route: 058
     Dates: start: 20100624
  4. GLIMEPIRIDE [Concomitant]
     Indication: DIABETES MELLITUS
     Dosage: 2 MG, 1X/DAY
     Route: 048
     Dates: start: 20100713
  5. ATORVASTATIN [Concomitant]
     Indication: HYPERCHOLESTEROLAEMIA
     Dosage: 10 MG, 1X/DAY
     Route: 048
     Dates: start: 20100713
  6. WARFARIN [Concomitant]
     Dosage: 7 MG, 1X/DAY
     Route: 048
     Dates: start: 20100718
  7. PENTOXIFYLLINE [Concomitant]
     Dosage: 400 MG, 2X/DAY
     Route: 048
     Dates: start: 20100803
  8. ALFUZOSIN [Concomitant]
     Indication: BENIGN PROSTATIC HYPERPLASIA
     Dosage: 10 MG, 1X/DAY
     Route: 048
     Dates: start: 20100802
  9. PREGABALIN [Concomitant]
     Indication: PAIN IN EXTREMITY
     Dosage: 100 MG, 2X/DAY
     Route: 048
     Dates: start: 20100730
  10. NEFOPAM [Concomitant]
     Indication: PAIN IN EXTREMITY
     Dosage: 80 MG, 1X/DAY
     Route: 042
     Dates: start: 20100729

REACTIONS (1)
  - PULMONARY EMBOLISM [None]
